FAERS Safety Report 25434567 (Version 3)
Quarter: 2025Q4

REPORT INFORMATION
  Report Type: Report from Study
  Country: US (occurrence: US)
  Receive Date: 20250613
  Receipt Date: 20251114
  Transmission Date: 20260118
  Serious: Yes (Other)
  Sender: TAKEDA
  Company Number: US-TAKEDA-2021TUS020508

PATIENT
  Age: 69 Year
  Sex: Male

DRUGS (5)
  1. BRIGATINIB [Suspect]
     Active Substance: BRIGATINIB
     Indication: Non-small cell lung cancer
     Dosage: 90 MILLIGRAM
  2. BRIGATINIB [Suspect]
     Active Substance: BRIGATINIB
     Indication: Lung neoplasm malignant
     Dosage: 180 MILLIGRAM
  3. BRIGATINIB [Suspect]
     Active Substance: BRIGATINIB
     Dosage: 180 MILLIGRAM, QD
  4. BRIGATINIB [Suspect]
     Active Substance: BRIGATINIB
     Dosage: 180 MILLIGRAM, QD
     Dates: start: 20250225
  5. BRIGATINIB [Suspect]
     Active Substance: BRIGATINIB
     Dosage: 180 MILLIGRAM, QD

REACTIONS (33)
  - Loss of consciousness [Unknown]
  - Cataract [Unknown]
  - Chest pain [Unknown]
  - Parosmia [Recovering/Resolving]
  - Anxiety [Unknown]
  - Product dose omission issue [Unknown]
  - Dehydration [Unknown]
  - Vitiligo [Unknown]
  - Depressed mood [Unknown]
  - Mental disorder [Unknown]
  - Alopecia [Unknown]
  - Feeling abnormal [Unknown]
  - Onycholysis [Unknown]
  - Lack of satiety [Unknown]
  - Skin discolouration [Unknown]
  - Frequent bowel movements [Unknown]
  - Fall [Unknown]
  - Weight decreased [Unknown]
  - Gastrooesophageal reflux disease [Recovering/Resolving]
  - Back pain [Recovered/Resolved]
  - Rash macular [Unknown]
  - Dizziness [Unknown]
  - Taste disorder [Recovering/Resolving]
  - Headache [Unknown]
  - Blood creatinine increased [Unknown]
  - Blood glucose increased [Unknown]
  - Visual impairment [Unknown]
  - Decreased appetite [Recovering/Resolving]
  - Photophobia [Unknown]
  - Fatigue [Unknown]
  - Nausea [Recovered/Resolved]
  - Diarrhoea [Not Recovered/Not Resolved]
  - Asthenia [Unknown]

NARRATIVE: CASE EVENT DATE: 20201225
